FAERS Safety Report 4446634-X (Version None)
Quarter: 2004Q3

REPORT INFORMATION
  Report Type: 
  Country: None (occurrence: None)
  Receive Date: 20040910
  Receipt Date: 20040216
  Transmission Date: 20050211
  Serious: Yes (Life-Threatening, Hospitalization, Other)
  Sender: FDA-Public Use
  Company Number: US-MERCK-0402USA01129

PATIENT
  Age: 80 Year
  Sex: Female
  Weight: 60 kg

DRUGS (10)
  1. DARVOCET-N 100 [Concomitant]
     Indication: WRIST FRACTURE
     Route: 048
  2. DARVOCET-N 100 [Concomitant]
     Route: 048
  3. AMITRIPTYLINE HYDROCHLORIDE [Concomitant]
     Route: 001
  4. AMITRIPTYLINE HYDROCHLORIDE [Concomitant]
     Route: 065
  5. ASPIRIN [Concomitant]
     Route: 065
  6. LIPITOR [Concomitant]
     Route: 048
  7. CALCIUM (UNSPECIFIED) [Concomitant]
     Route: 065
  8. CENTRUM [Concomitant]
     Route: 065
  9. VIOXX [Suspect]
     Indication: PAIN
     Route: 048
     Dates: start: 20000701, end: 20001201
  10. TIMOPTIC [Concomitant]
     Route: 047

REACTIONS (14)
  - CARDIAC FAILURE CONGESTIVE [None]
  - CHOLECYSTITIS CHRONIC [None]
  - CHOLELITHIASIS [None]
  - DEPRESSION [None]
  - FRACTURE DELAYED UNION [None]
  - GASTRIC ULCER HAEMORRHAGE [None]
  - ILEAL ULCER [None]
  - INJURY [None]
  - LIVER FUNCTION TEST ABNORMAL [None]
  - MALNUTRITION [None]
  - SEPSIS [None]
  - SMALL INTESTINAL HAEMORRHAGE [None]
  - UPPER GASTROINTESTINAL HAEMORRHAGE [None]
  - WRIST FRACTURE [None]
